FAERS Safety Report 10378550 (Version 2)
Quarter: 2014Q3

REPORT INFORMATION
  Report Type: Spontaneous
  Country: US (occurrence: None)
  Receive Date: 20140804
  Receipt Date: 20140918
  Transmission Date: 20150326
  Serious: Yes (Death)
  Sender: FDA-Public Use
  Company Number: 1713747-2013-99901

PATIENT

DRUGS (7)
  1. GRANUFLO [Concomitant]
     Active Substance: ACETIC ACID\SODIUM ACETATE
  2. 0.9% SODIUM CHLORIDE INJECTION [Suspect]
     Active Substance: SODIUM CHLORIDE
     Dosage: HEMODIALYSIS
  3. 2008K [Concomitant]
  4. UNKNOWN FRESENIUS SALINE [Concomitant]
  5. UNKNOWN FRESENIUS TUBING [Concomitant]
  6. UNKNOWN FRESENIUS DIALYZER [Concomitant]
  7. NATURLYTE [Concomitant]

REACTIONS (1)
  - Death [None]

NARRATIVE: CASE EVENT DATE: 201310
